FAERS Safety Report 5083235-7 (Version None)
Quarter: 2006Q3

REPORT INFORMATION
  Report Type: 
  Country: None (occurrence: None)
  Receive Date: 20060720
  Receipt Date: 20060509
  Transmission Date: 20061208
  Serious: Yes (Hospitalization)
  Sender: FDA-Public Use
  Company Number: 2006063296

PATIENT
  Age: 51 Year
  Sex: Female
  Weight: 67.1324 kg

DRUGS (1)
  1. CELEBREX [Suspect]
     Indication: ARTHRITIS
     Dosage: 400 MG (200 MG,2 IN 1 D)
     Dates: start: 19950501

REACTIONS (5)
  - BLOOD GLUCOSE DECREASED [None]
  - CHEST PAIN [None]
  - DYSPNOEA [None]
  - IMMUNE SYSTEM DISORDER [None]
  - MYOCARDIAL INFARCTION [None]
